FAERS Safety Report 15491812 (Version 1)
Quarter: 2018Q4

REPORT INFORMATION
  Report Type: Spontaneous
  Country: US (occurrence: US)
  Receive Date: 20181011
  Receipt Date: 20181011
  Transmission Date: 20190205
  Serious: Yes (Disabling, Other)
  Sender: FDA-Public Use
  Company Number: None

PATIENT
  Age: 44 Year
  Sex: Female
  Weight: 69.75 kg

DRUGS (4)
  1. DULOXETINE. [Suspect]
     Active Substance: DULOXETINE
     Indication: ANXIETY
     Dosage: ?          QUANTITY:30 CAPSULE(S);?
     Route: 001
     Dates: start: 20150913, end: 20180904
  2. ESTROGEN [Concomitant]
     Active Substance: ESTROGENS
  3. PROGESTERONE. [Concomitant]
     Active Substance: PROGESTERONE
  4. WELLBUTRIN [Concomitant]
     Active Substance: BUPROPION HYDROCHLORIDE

REACTIONS (13)
  - Palpitations [None]
  - Memory impairment [None]
  - Disturbance in attention [None]
  - Fear [None]
  - Fall [None]
  - Hepatic enzyme increased [None]
  - Drug withdrawal syndrome [None]
  - Lethargy [None]
  - Hypertension [None]
  - Dizziness [None]
  - Paraesthesia [None]
  - Urinary tract infection [None]
  - Endometriosis [None]

NARRATIVE: CASE EVENT DATE: 20180813
